FAERS Safety Report 24252114 (Version 1)
Quarter: 2024Q3

REPORT INFORMATION
  Report Type: Spontaneous
  Country: US (occurrence: US)
  Receive Date: 20240827
  Receipt Date: 20240827
  Transmission Date: 20241016
  Serious: Yes (Death, Hospitalization, Other)
  Sender: DR REDDYS
  Company Number: US-DRL-USA-SPO/USA/24/0012256

PATIENT
  Age: 38 Year
  Sex: Male

DRUGS (7)
  1. CAPECITABINE [Suspect]
     Active Substance: CAPECITABINE
     Indication: Adenocarcinoma gastric
     Dosage: FOR 3 MONTHS
  2. CAPECITABINE [Suspect]
     Active Substance: CAPECITABINE
     Indication: Signet-ring cell carcinoma
  3. OXALIPLATIN [Suspect]
     Active Substance: OXALIPLATIN
     Indication: Adenocarcinoma gastric
  4. OXALIPLATIN [Suspect]
     Active Substance: OXALIPLATIN
     Indication: Signet-ring cell carcinoma
  5. FLUOROURACIL [Suspect]
     Active Substance: FLUOROURACIL
     Indication: Adenocarcinoma gastric
     Dosage: FOR 7 MONTHS
  6. FLUOROURACIL [Suspect]
     Active Substance: FLUOROURACIL
     Indication: Signet-ring cell carcinoma
  7. RIVAROXABAN [Concomitant]
     Active Substance: RIVAROXABAN
     Indication: Deep vein thrombosis

REACTIONS (2)
  - Malignant neoplasm progression [Fatal]
  - Drug ineffective [Fatal]
